FAERS Safety Report 10141573 (Version 1)
Quarter: 2014Q2

REPORT INFORMATION
  Report Type: Spontaneous
  Country: FR (occurrence: FR)
  Receive Date: 20140429
  Receipt Date: 20140429
  Transmission Date: 20141212
  Serious: Yes (Death, Hospitalization)
  Sender: FDA-Public Use
  Company Number: FR-GLAXOSMITHKLINE-B0988487A

PATIENT
  Age: 83 Year
  Sex: Female

DRUGS (6)
  1. ARIXTRA [Suspect]
     Indication: THROMBOPHLEBITIS
     Dosage: 7.5MG UNKNOWN
     Route: 058
     Dates: start: 201312
  2. DEPAMIDE [Concomitant]
     Route: 065
  3. XANAX [Concomitant]
     Route: 065
  4. MIANSERINE [Concomitant]
     Route: 065
  5. DUROGESIC [Concomitant]
     Route: 065
  6. DIFFU K [Concomitant]
     Route: 065

REACTIONS (5)
  - Cerebral haemorrhage [Fatal]
  - Altered state of consciousness [Unknown]
  - Vomiting [Unknown]
  - Speech disorder [Unknown]
  - Incorrect drug administration duration [Unknown]
